FAERS Safety Report 4598327-6 (Version None)
Quarter: 2005Q1

REPORT INFORMATION
  Report Type: 
  Country: None (occurrence: None)
  Receive Date: 20050304
  Receipt Date: 20050210
  Transmission Date: 20050727
  Serious: Yes (Hospitalization, Other)
  Sender: FDA-Public Use
  Company Number: PHBS2005JP02235

PATIENT
  Age: 77 Year

DRUGS (11)
  1. LOPRESSOR [Suspect]
     Indication: HYPERTENSION
     Dosage: 5 MG, TID
     Route: 048
     Dates: start: 20050120, end: 20050204
  2. PANALDINE [Suspect]
     Dosage: 100 MG, QD
     Route: 048
     Dates: start: 20041006, end: 20050204
  3. LOXONIN [Concomitant]
     Dosage: 180 MG, UNK
     Route: 048
     Dates: start: 20041205, end: 20050204
  4. ASPIRIN [Suspect]
     Dosage: 100 MG, QD
     Route: 048
     Dates: start: 20041006, end: 20050204
  5. ASPIRIN [Suspect]
     Dosage: 100 MG, QD
     Route: 048
     Dates: start: 20050211
  6. FRANDOL [Concomitant]
     Dosage: UNK, UNK
     Route: 061
  7. LAC B [Concomitant]
     Dosage: 3 G, UNK
     Route: 048
     Dates: start: 20041201, end: 20050204
  8. SIGMART [Suspect]
     Dosage: 100 MG, QD
     Route: 048
     Dates: start: 20041006, end: 20050202
  9. SIGMART [Suspect]
     Dosage: 15 MG, QD
     Route: 048
     Dates: start: 20050211
  10. SELBEX [Concomitant]
     Dosage: 150 MG, UNK
     Route: 048
     Dates: start: 20041201, end: 20050204
  11. RABEPRAZOLE SODIUM [Concomitant]
     Dosage: 10 MG, UNK
     Route: 048

REACTIONS (13)
  - ABDOMINAL PAIN [None]
  - ALANINE AMINOTRANSFERASE INCREASED [None]
  - ASPARTATE AMINOTRANSFERASE INCREASED [None]
  - BLOOD ALKALINE PHOSPHATASE INCREASED [None]
  - BLOOD AMYLASE INCREASED [None]
  - BLOOD LACTATE DEHYDROGENASE INCREASED [None]
  - CHOLELITHIASIS [None]
  - GALLSTONES IN BILE DUCT REMOVAL [None]
  - GAMMA-GLUTAMYLTRANSFERASE INCREASED [None]
  - LIPASE INCREASED [None]
  - LIVER DISORDER [None]
  - PRURITUS [None]
  - RASH [None]
